FAERS Safety Report 8892584 (Version 1)
Quarter: 2012Q4

REPORT INFORMATION
  Report Type: 
  Country: US (occurrence: US)
  Receive Date: 20121107
  Receipt Date: 20121107
  Transmission Date: 20130627
  Serious: No
  Sender: FDA-Public Use
  Company Number: US-AMGEN-USASP2011061278

PATIENT
  Age: 38 Year
  Sex: Female

DRUGS (6)
  1. ENBREL [Suspect]
     Indication: PRODUCT USED FOR UNKNOWN INDICATION
     Dosage: 50 mg, qwk
  2. PLAQUENIL                          /00072602/ [Concomitant]
  3. FUROSEMIDE [Concomitant]
  4. METHOTREXATE [Concomitant]
  5. FOLIC ACID [Concomitant]
  6. VITAMIN D /00107901/ [Concomitant]

REACTIONS (4)
  - Injection site reaction [Unknown]
  - Urticaria [Unknown]
  - Injection site erythema [Unknown]
  - Injection site pruritus [Unknown]
